FAERS Safety Report 10732746 (Version 1)
Quarter: 2015Q1

REPORT INFORMATION
  Report Type: Spontaneous
  Country: JP (occurrence: JP)
  Receive Date: 20150123
  Receipt Date: 20150123
  Transmission Date: 20150721
  Serious: Yes (Hospitalization, Other)
  Sender: FDA-Public Use
  Company Number: JP-PFIZER INC-2015025930

PATIENT
  Age: 60 Year
  Sex: Female
  Weight: 50 kg

DRUGS (6)
  1. SPIROPENT [Suspect]
     Active Substance: CLENBUTEROL HYDROCHLORIDE
     Route: 048
  2. TAKEPRON [Suspect]
     Active Substance: LANSOPRAZOLE
     Route: 048
  3. THIATON [Suspect]
     Active Substance: TIQUIZIUM BROMIDE
     Route: 048
  4. LOXONIN [Suspect]
     Active Substance: LOXOPROFEN SODIUM
     Route: 048
  5. CLARITIN [Suspect]
     Active Substance: LORATADINE
     Route: 048
  6. LYRICA [Suspect]
     Active Substance: PREGABALIN
     Dosage: UNK
     Route: 048

REACTIONS (2)
  - Eosinophilic cystitis [Recovered/Resolved]
  - Drug hypersensitivity [Unknown]

NARRATIVE: CASE EVENT DATE: 201303
